FAERS Safety Report 12613163 (Version 2)
Quarter: 2017Q3

REPORT INFORMATION
  Report Type: Spontaneous
  Country: US (occurrence: US)
  Receive Date: 20160802
  Receipt Date: 20170719
  Transmission Date: 20171127
  Serious: No
  Sender: FDA-Public Use
  Company Number: US-PAR PHARMACEUTICAL, INC-2016SCPR015460

PATIENT

DRUGS (2)
  1. CALCITONIN [Suspect]
     Active Substance: CALCITONIN
     Indication: OSTEOPOROSIS
     Dosage: UNK UNK, UNKNOWN
     Route: 045
     Dates: start: 201602, end: 201602
  2. CALCITONIN [Suspect]
     Active Substance: CALCITONIN
     Dosage: UNK UNK, UNKNOWN
     Route: 045
     Dates: start: 201605, end: 201605

REACTIONS (3)
  - Product storage error [Unknown]
  - Product odour abnormal [Unknown]
  - Drug administration error [Unknown]

NARRATIVE: CASE EVENT DATE: 201602
